FAERS Safety Report 9167423 (Version 1)
Quarter: 2013Q1

REPORT INFORMATION
  Report Type: Spontaneous
  Country: US (occurrence: None)
  Receive Date: 20130301
  Receipt Date: 20130301
  Transmission Date: 20140127
  Serious: Yes (Hospitalization)
  Sender: FDA-Public Use
  Company Number: USA/USA/13/0028263

PATIENT
  Age: 23 Year
  Sex: Male

DRUGS (8)
  1. FLUOXETINE (FLUOXETINE) [Suspect]
     Indication: DEPRESSION
  2. FENTANYL (FENTANYL) [Suspect]
     Indication: INDUCTION OF ANAESTHESIA
  3. REMIFENTANIL [Suspect]
     Indication: MAINTENANCE OF ANAESTHESIA
     Route: 040
  4. DIAZEPAM (DIAZEPAM) [Suspect]
     Indication: DEPRESSION
  5. PROPOFOL (PROPOFOL) [Suspect]
     Indication: GENERAL ANAESTHESIA
     Route: 040
  6. MIDAZOLAM (MIDAZOLAM) [Concomitant]
  7. BUPIVACAINE (BUPIVACAINE) [Concomitant]
  8. ADRENALINE (EPINEPHRINE) [Concomitant]

REACTIONS (3)
  - Drug interaction [None]
  - Inadequate analgesia [None]
  - Clonus [None]
